FAERS Safety Report 17528592 (Version 4)
Quarter: 2021Q1

REPORT INFORMATION
  Report Type: Report from Study
  Country: None (occurrence: NL)
  Receive Date: 20200312
  Receipt Date: 20210122
  Transmission Date: 20210419
  Serious: Yes (Hospitalization, Other)
  Sender: FDA-Public Use
  Company Number: NL-ABBVIE-19S-114-2805794-00

PATIENT
  Age: 73 Year
  Sex: Male
  Weight: 69 kg

DRUGS (4)
  1. MOVICOLON [Concomitant]
     Active Substance: POLYETHYLENE GLYCOL 3350\POTASSIUM CHLORIDE\SODIUM BICARBONATE\SODIUM CHLORIDE
     Indication: ABNORMAL FAECES
  2. DUODOPA [Suspect]
     Active Substance: CARBIDOPA\LEVODOPA
     Indication: PARKINSON^S DISEASE
     Dosage: MD 6.5, CD 3.6, ED 2.0 ML W/ 6HR LOCK LEVEL;AVG 2 DOSES OF ED/DAY;CND 1.7, END 2.0 ML;
     Route: 050
     Dates: start: 20180806
  3. MACROGOL [Concomitant]
     Active Substance: POLYETHYLENE GLYCOLS
     Indication: PRODUCT USED FOR UNKNOWN INDICATION
  4. DUODOPA [Suspect]
     Active Substance: CARBIDOPA\LEVODOPA
     Dosage: MD: 6.5; CD: 3.6 ML/H; ED: 2ML; CND: 1.7 ML/H;
     Route: 050

REACTIONS (42)
  - Memory impairment [Not Recovered/Not Resolved]
  - Irritability [Not Recovered/Not Resolved]
  - Speech disorder [Not Recovered/Not Resolved]
  - Unevaluable event [Not Recovered/Not Resolved]
  - Weight decreased [Recovered/Resolved]
  - Hallucination [Not Recovered/Not Resolved]
  - Incontinence [Not Recovered/Not Resolved]
  - On and off phenomenon [Not Recovered/Not Resolved]
  - Fatigue [Not Recovered/Not Resolved]
  - Hip fracture [Unknown]
  - Bladder disorder [Not Recovered/Not Resolved]
  - Amnesia [Not Recovered/Not Resolved]
  - Device loosening [Unknown]
  - Unevaluable event [Recovered/Resolved]
  - Parkinson^s disease [Recovered/Resolved]
  - Hypophagia [Not Recovered/Not Resolved]
  - Sleep disorder [Recovering/Resolving]
  - Wheelchair user [Unknown]
  - Cardiac failure [Not Recovered/Not Resolved]
  - Product storage error [Recovered/Resolved]
  - Derealisation [Recovering/Resolving]
  - Dyspnoea [Not Recovered/Not Resolved]
  - Hyperventilation [Not Recovered/Not Resolved]
  - Nocturia [Not Recovered/Not Resolved]
  - Thrombosis [Recovered/Resolved]
  - Impaired quality of life [Not Recovered/Not Resolved]
  - Parkinsonian gait [Not Recovered/Not Resolved]
  - Muscle rigidity [Not Recovered/Not Resolved]
  - Hot flush [Not Recovered/Not Resolved]
  - Tremor [Unknown]
  - Fall [Unknown]
  - General physical health deterioration [Not Recovered/Not Resolved]
  - Fluid intake reduced [Not Recovered/Not Resolved]
  - Confusional state [Not Recovered/Not Resolved]
  - Anxiety [Recovering/Resolving]
  - Hyperkinesia [Not Recovered/Not Resolved]
  - Bradykinesia [Not Recovered/Not Resolved]
  - Cognitive disorder [Not Recovered/Not Resolved]
  - Gait disturbance [Not Recovered/Not Resolved]
  - Abnormal dreams [Recovering/Resolving]
  - Circadian rhythm sleep disorder [Not Recovered/Not Resolved]
  - Fear [Not Recovered/Not Resolved]

NARRATIVE: CASE EVENT DATE: 20190523
